FAERS Safety Report 17816772 (Version 1)
Quarter: 2020Q2

REPORT INFORMATION
  Report Type: Spontaneous
  Country: FR (occurrence: FR)
  Receive Date: 20200522
  Receipt Date: 20200522
  Transmission Date: 20200714
  Serious: Yes (Hospitalization)
  Sender: FDA-Public Use
  Company Number: FR-TEVA-2020-FR-1238207

PATIENT
  Age: 37 Year
  Sex: Male

DRUGS (4)
  1. PANTOPRAZOLE [Suspect]
     Active Substance: PANTOPRAZOLE
     Indication: BACK PAIN
     Dosage: NOT COMMUNICATED
     Route: 048
     Dates: start: 20170503, end: 20170512
  2. IZALGI 500 MG/25 MG, G?LULE [Suspect]
     Active Substance: ACETAMINOPHEN\OPIUM
     Indication: BACK PAIN
     Dosage: NOT COMMUNICATED
     Route: 048
     Dates: start: 20170503, end: 20170512
  3. CELECOXIB. [Suspect]
     Active Substance: CELECOXIB
     Indication: BACK PAIN
     Dosage: 200 MG MORNING AND EVENING. UNIT DOSE: 400 MG
     Route: 048
     Dates: start: 20170503, end: 20170512
  4. IXPRIM [Suspect]
     Active Substance: ACETAMINOPHEN\TRAMADOL HYDROCHLORIDE
     Indication: BACK PAIN
     Dosage: NOT COMMUNICATED
     Route: 048
     Dates: start: 20170503, end: 20170512

REACTIONS (1)
  - Rash maculo-papular [Recovered/Resolved]

NARRATIVE: CASE EVENT DATE: 20170512
